FAERS Safety Report 13546723 (Version 2)
Quarter: 2018Q3

REPORT INFORMATION
  Report Type: Spontaneous
  Country: US (occurrence: US)
  Receive Date: 20170515
  Receipt Date: 20180808
  Transmission Date: 20181010
  Serious: No
  Sender: FDA-Public Use
  Company Number: US-VIFOR (INTERNATIONAL) INC.-VIT-2017-02577

PATIENT
  Age: 84 Year
  Sex: Female

DRUGS (8)
  1. ATORVAST [Concomitant]
  2. VELTASSA [Suspect]
     Active Substance: PATIROMER
     Indication: HYPERKALAEMIA
     Route: 048
     Dates: start: 20161213
  3. IRBESAR [Concomitant]
  4. LEVOTHYR [Concomitant]
  5. STARLIX [Concomitant]
     Active Substance: NATEGLINIDE
  6. JANUM [Concomitant]
  7. VITAMIN D3 [Concomitant]
     Active Substance: CHOLECALCIFEROL
  8. TRAMAD [Concomitant]

REACTIONS (3)
  - Frequent bowel movements [Unknown]
  - Abdominal pain upper [Unknown]
  - Drug dose omission [Not Recovered/Not Resolved]

NARRATIVE: CASE EVENT DATE: 201612
